FAERS Safety Report 16462033 (Version 1)
Quarter: 2019Q2

REPORT INFORMATION
  Report Type: Spontaneous
  Country: GB (occurrence: GB)
  Receive Date: 20190621
  Receipt Date: 20190621
  Transmission Date: 20190711
  Serious: Yes (Disabling, Other)
  Sender: FDA-Public Use
  Company Number: GB-009507513-1906GBR005871

PATIENT
  Sex: Female

DRUGS (1)
  1. SINEMET [Suspect]
     Active Substance: CARBIDOPA\LEVODOPA
     Indication: PARKINSON^S DISEASE
     Dosage: UNK
     Route: 048

REACTIONS (8)
  - Depression [Unknown]
  - Asthenia [Unknown]
  - Akinesia [Unknown]
  - Boredom [Unknown]
  - Product availability issue [Unknown]
  - Product dose omission [Unknown]
  - Frustration tolerance decreased [Unknown]
  - Affective disorder [Unknown]
